FAERS Safety Report 7209116-8 (Version None)
Quarter: 2010Q4

REPORT INFORMATION
  Report Type: 
  Country: None (occurrence: None)
  Receive Date: 20101222
  Receipt Date: 20101207
  Transmission Date: 20110411
  Serious: Yes (Death, Hospitalization)
  Sender: FDA-Public Use
  Company Number: 2010SA074084

PATIENT
  Age: 62 Year
  Sex: Male

DRUGS (10)
  1. CISPLATIN [Suspect]
     Indication: NON-SMALL CELL LUNG CANCER STAGE IV
     Dosage: 75 MILLIGRAM(S) SQUARE METER; POWDER FOR SOLUTION FOR INFUSION
     Route: 041
     Dates: start: 20101116, end: 20101116
  2. GEMCITABINE [Suspect]
     Indication: NON-SMALL CELL LUNG CANCER STAGE IV
     Dosage: 1250 MILLIGRAM(S)/ QUARE METER; POWDER FOR SOLUTION FOR INFUSION
     Route: 041
     Dates: start: 20101123, end: 20101123
  3. ACETAMINOPHEN [Concomitant]
  4. KYTRIL [Concomitant]
  5. XANAX [Concomitant]
  6. EMEND [Concomitant]
  7. SOLU-MEDROL [Concomitant]
  8. I.V. SOLUTIONS [Concomitant]
  9. NEO-CODION NN (CODEINE CAMSILATE) [Concomitant]
  10. ZOFRAN [Concomitant]

REACTIONS (2)
  - FEBRILE BONE MARROW APLASIA [None]
  - SEPTIC SHOCK [None]
